FAERS Safety Report 6574479-3 (Version None)
Quarter: 2010Q1

REPORT INFORMATION
  Report Type: 
  Country: None (occurrence: None)
  Receive Date: 20100209
  Receipt Date: 20090902
  Transmission Date: 20100710
  Serious: Yes (Hospitalization)
  Sender: FDA-Public Use
  Company Number: A0805684A

PATIENT
  Age: 34 Year
  Sex: Male

DRUGS (1)
  1. PAROXETINE HYDROCHLORIDE [Suspect]
     Dosage: 60MG PER DAY
     Route: 048
     Dates: start: 19910101, end: 20061001

REACTIONS (2)
  - HEADACHE [None]
  - PARAESTHESIA [None]
